FAERS Safety Report 19920262 (Version 1)
Quarter: 2021Q4

REPORT INFORMATION
  Report Type: Spontaneous
  Country: US (occurrence: US)
  Receive Date: 20211005
  Receipt Date: 20211005
  Transmission Date: 20220303
  Serious: Yes (Other)
  Sender: FDA-Public Use
  Company Number: US-ROCHE-2925040

PATIENT
  Sex: Male
  Weight: 127.12 kg

DRUGS (2)
  1. RITUXAN [Suspect]
     Active Substance: RITUXIMAB
     Indication: Follicular lymphoma
     Dosage: NO
     Route: 041
     Dates: start: 201103, end: 2011
  2. GAZYVA [Suspect]
     Active Substance: OBINUTUZUMAB
     Indication: Follicular lymphoma
     Dosage: NO
     Route: 042
     Dates: start: 2020, end: 202009

REACTIONS (3)
  - Chills [Unknown]
  - Tremor [Recovered/Resolved]
  - Asthenia [Unknown]
